FAERS Safety Report 9820142 (Version 1)
Quarter: 2013Q4

REPORT INFORMATION
  Report Type: Spontaneous
  Country: GB (occurrence: None)
  Receive Date: 20131017
  Receipt Date: 20131017
  Transmission Date: 20140711
  Serious: Yes (Other)
  Sender: FDA-Public Use
  Company Number: 2013GMK005597

PATIENT
  Age: 62 Year
  Sex: Female

DRUGS (4)
  1. GABAPENTIN [Suspect]
     Indication: NECK PAIN
     Route: 048
     Dates: start: 20121212, end: 20130222
  2. CHEMOTHERAPEUTICS [Concomitant]
  3. CODEINE [Concomitant]
  4. PARACETAMOL (PARACETAMOL) [Concomitant]

REACTIONS (1)
  - Thrombocytopenia [None]
